FAERS Safety Report 9271254 (Version 2)
Quarter: 2015Q2

REPORT INFORMATION
  Report Type: Spontaneous
  Country: US (occurrence: US)
  Receive Date: 20130506
  Receipt Date: 20150526
  Transmission Date: 20150821
  Serious: Yes (Congenital Anomaly, Other)
  Sender: FDA-Public Use
  Company Number: US-ELI_LILLY_AND_COMPANY-US201304008034

PATIENT

DRUGS (14)
  1. PROZAC [Suspect]
     Active Substance: FLUOXETINE HYDROCHLORIDE
     Indication: DEPRESSION
     Dosage: 20 MG, QD
     Route: 064
  2. XANAX [Concomitant]
     Active Substance: ALPRAZOLAM
     Route: 064
  3. PAXIL [Concomitant]
     Active Substance: PAROXETINE HYDROCHLORIDE
     Route: 064
  4. SIMETIDIN [Concomitant]
     Route: 064
  5. SECONAL                            /00048601/ [Concomitant]
     Route: 064
  6. PAXIL [Concomitant]
     Active Substance: PAROXETINE HYDROCHLORIDE
     Route: 064
  7. SIMETIDIN [Concomitant]
     Route: 064
  8. NUBAIN [Concomitant]
     Active Substance: NALBUPHINE HYDROCHLORIDE
  9. NUBAIN [Concomitant]
     Active Substance: NALBUPHINE HYDROCHLORIDE
  10. PROZAC [Suspect]
     Active Substance: FLUOXETINE HYDROCHLORIDE
     Indication: DEPRESSION
     Dosage: 20 MG, QD
     Route: 064
  11. XANAX [Concomitant]
     Active Substance: ALPRAZOLAM
     Route: 064
  12. SECONAL                            /00048601/ [Concomitant]
     Route: 064
  13. CYTOTEC [Concomitant]
     Active Substance: MISOPROSTOL
     Route: 064
  14. CYTOTEC [Concomitant]
     Active Substance: MISOPROSTOL
     Route: 064

REACTIONS (6)
  - Attention deficit/hyperactivity disorder [Unknown]
  - Depression [Unknown]
  - Exposure during breast feeding [Unknown]
  - Anxiety [Unknown]
  - Foetal exposure during pregnancy [Recovered/Resolved]
  - Craniosynostosis [Recovered/Resolved]
